FAERS Safety Report 11353985 (Version 1)
Quarter: 2015Q3

REPORT INFORMATION
  Report Type: Spontaneous
  Country: US (occurrence: US)
  Receive Date: 20150807
  Receipt Date: 20150807
  Transmission Date: 20151125
  Serious: No
  Sender: FDA-Public Use
  Company Number: US-JNJFOC-20141111523

PATIENT
  Age: 61 Year
  Sex: Female
  Weight: 65.77 kg

DRUGS (5)
  1. FOLIC ACID. [Concomitant]
     Active Substance: FOLIC ACID
     Indication: OSTEOPOROSIS
     Dosage: PATIENT WAS TAKING FROM YEARS.
     Route: 065
  2. MENS ROGAINE EXTRA STRENGTH [Suspect]
     Active Substance: MINOXIDIL
     Route: 061
  3. VITAMIN D [Concomitant]
     Active Substance: CHOLECALCIFEROL
     Indication: OSTEOPOROSIS
     Dosage: PATIENT WAS TAKING FROM YEARS.
     Route: 065
  4. WARFARIN [Concomitant]
     Active Substance: WARFARIN
     Indication: ANTICOAGULANT THERAPY
     Dosage: PATIENT WAS TAKING FROM YEARS.
     Route: 065
  5. MENS ROGAINE EXTRA STRENGTH [Suspect]
     Active Substance: MINOXIDIL
     Indication: ALOPECIA
     Dosage: ABOUT A CAPFUL
     Route: 061
     Dates: start: 20141010

REACTIONS (3)
  - Wrong patient received medication [Unknown]
  - Hair texture abnormal [Recovered/Resolved]
  - Feeling abnormal [Recovered/Resolved]
